FAERS Safety Report 17413866 (Version 1)
Quarter: 2020Q1

REPORT INFORMATION
  Report Type: Spontaneous
  Country: US (occurrence: US)
  Receive Date: 20200213
  Receipt Date: 20200213
  Transmission Date: 20200409
  Serious: No
  Sender: FDA-Public Use
  Company Number: None

PATIENT
  Age: 25 Year
  Weight: 69.75 kg

DRUGS (3)
  1. RISPERDAL CONSTA [Concomitant]
     Active Substance: RISPERIDONE
  2. LAMICTAL [Suspect]
     Active Substance: LAMOTRIGINE
     Indication: BIPOLAR DISORDER
     Dosage: ?          QUANTITY:1 TABLET(S);?
     Route: 048
     Dates: start: 20180510
  3. OLIVE OIL [Concomitant]
     Active Substance: OLIVE OIL

REACTIONS (2)
  - Rash erythematous [None]
  - Vein disorder [None]

NARRATIVE: CASE EVENT DATE: 20190815
